FAERS Safety Report 6794563-9 (Version None)
Quarter: 2010Q2

REPORT INFORMATION
  Report Type: 
  Country: None (occurrence: None)
  Receive Date: 20100625
  Receipt Date: 20090122
  Transmission Date: 20101027
  Serious: Yes (Death, Life-Threatening, Other)
  Sender: FDA-Public Use
  Company Number: JP-JNJFOC-20100606858

PATIENT
  Sex: Female
  Weight: 70 kg

DRUGS (26)
  1. ITRIZOLE [Suspect]
     Indication: PROPHYLAXIS
     Route: 048
  2. VALTREX [Suspect]
     Indication: HERPES ZOSTER
     Route: 048
  3. DECADRON [Suspect]
     Indication: MULTIPLE MYELOMA
     Route: 042
  4. DECADRON [Suspect]
     Route: 042
  5. DECADRON [Suspect]
     Route: 042
  6. LASIX [Suspect]
     Indication: RENAL IMPAIRMENT
     Route: 048
  7. COTRIM [Suspect]
     Indication: PROPHYLAXIS
     Route: 048
  8. VELCADE [Suspect]
     Indication: MULTIPLE MYELOMA
     Route: 042
  9. VELCADE [Suspect]
     Route: 042
  10. ZANTAC [Concomitant]
     Indication: PROPHYLAXIS
     Route: 048
  11. MUCOSTA [Concomitant]
     Indication: PROPHYLAXIS
     Route: 048
  12. ZYLORIC [Concomitant]
     Indication: PROPHYLAXIS
     Route: 048
  13. SHAKUYAKU-K ANZO-TO [Concomitant]
     Indication: PROPHYLAXIS
     Route: 048
  14. LUPRAC [Concomitant]
     Indication: PROPHYLAXIS
     Route: 048
  15. MAGMITT [Concomitant]
     Indication: PROPHYLAXIS
     Route: 048
  16. FENTANYL/DUROTEP MT PATCH [Concomitant]
     Indication: CANCER PAIN
     Route: 062
  17. FENTANYL/DUROTEP MT PATCH [Concomitant]
     Route: 062
  18. HYPEN [Concomitant]
     Indication: CANCER PAIN
     Route: 048
  19. OXYCONTIN [Concomitant]
     Indication: CANCER PAIN
     Route: 048
  20. MEROPENEM [Concomitant]
     Indication: BACTERIAL INFECTION
     Route: 042
  21. MORPHINE HYDROCHLORIDE [Concomitant]
     Indication: CANCER PAIN
     Route: 058
  22. ZOMETA [Concomitant]
     Indication: BONE LESION
     Route: 042
  23. SOLDEM 3A [Concomitant]
     Indication: HYPONATRAEMIA
     Route: 042
  24. POTASSIUM CHLORIDE [Concomitant]
     Indication: HYPOKALAEMIA
     Route: 042
  25. LASIX [Concomitant]
     Route: 042
  26. PREDOPA [Concomitant]
     Indication: RENAL IMPAIRMENT
     Route: 042

REACTIONS (9)
  - ALTERED STATE OF CONSCIOUSNESS [None]
  - HAEMOGLOBIN DECREASED [None]
  - HERPES ZOSTER [None]
  - HYPOKALAEMIA [None]
  - HYPONATRAEMIA [None]
  - MULTIPLE MYELOMA [None]
  - PLATELET COUNT DECREASED [None]
  - RENAL FAILURE ACUTE [None]
  - SUDDEN DEATH [None]
